FAERS Safety Report 13423245 (Version 1)
Quarter: 2017Q2

REPORT INFORMATION
  Report Type: Spontaneous
  Country: SE (occurrence: SE)
  Receive Date: 20170410
  Receipt Date: 20170410
  Transmission Date: 20170830
  Serious: Yes (Other)
  Sender: FDA-Public Use
  Company Number: SE-TEVA-756898ISR

PATIENT
  Age: 71 Year
  Sex: Male

DRUGS (1)
  1. ATENOLOL. [Suspect]
     Active Substance: ATENOLOL
     Route: 048

REACTIONS (2)
  - Sleep disorder [Not Recovered/Not Resolved]
  - Nightmare [Not Recovered/Not Resolved]
